FAERS Safety Report 22617868 (Version 2)
Quarter: 2023Q2

REPORT INFORMATION
  Report Type: Spontaneous
  Country: US (occurrence: US)
  Receive Date: 20230620
  Receipt Date: 20230620
  Transmission Date: 20230721
  Serious: Yes (Hospitalization)
  Sender: FDA-Public Use
  Company Number: US-ABBVIE-5296487

PATIENT
  Sex: Female

DRUGS (1)
  1. VENCLEXTA [Suspect]
     Active Substance: VENETOCLAX
     Indication: Acute monocytic leukaemia
     Dosage: FORM STRENGTH: 100 MILLIGRAM?TAKE 2 TABLET(S) BY MOUTH ONCE A DAY
     Route: 048

REACTIONS (1)
  - Chronic disease [Unknown]
